FAERS Safety Report 4386321-X (Version None)
Quarter: 2004Q2

REPORT INFORMATION
  Report Type: 
  Country: None (occurrence: None)
  Receive Date: 20040623
  Receipt Date: 20040611
  Transmission Date: 20050107
  Serious: Yes (Hospitalization)
  Sender: FDA-Public Use
  Company Number: 03P-167-0233978-00

PATIENT
  Age: 58 Year
  Sex: Female
  Weight: 69.4 kg

DRUGS (9)
  1. HUMIRA [Suspect]
     Indication: RHEUMATOID ARTHRITIS
     Dosage: 1 IN 2 WK, SUBCUTANEOUS
     Route: 058
     Dates: start: 20001202, end: 20030801
  2. ROFECOXIB [Concomitant]
  3. SKEMATIR [Concomitant]
  4. LANSOPRAZOLE [Concomitant]
  5. ACETAMINOPHEN [Concomitant]
  6. CUTUROTEC [Concomitant]
  7. PROCHLORPERAZINE [Concomitant]
  8. PREDNISONE [Concomitant]
  9. CALCIUM WITH VITAMIN D [Concomitant]

REACTIONS (2)
  - AUTOIMMUNE HEPATITIS [None]
  - HEPATIC CIRRHOSIS [None]
